FAERS Safety Report 7002671-2 (Version None)
Quarter: 2010Q3

REPORT INFORMATION
  Report Type: 
  Country: None (occurrence: None)
  Receive Date: 20100917
  Receipt Date: 20100917
  Transmission Date: 20110219
  Serious: Yes (Hospitalization)
  Sender: FDA-Public Use
  Company Number: None

PATIENT
  Age: 63 Year
  Sex: Male
  Weight: 124 kg

DRUGS (1)
  1. INSULIN [Suspect]
     Indication: TYPE 1 DIABETES MELLITUS
     Dosage: 72 UNITS ONCE SQ
     Route: 058
     Dates: start: 20100912, end: 20100912

REACTIONS (2)
  - HYPOGLYCAEMIA [None]
  - INCORRECT DRUG DOSAGE FORM ADMINISTERED [None]
